FAERS Safety Report 5297849-2 (Version None)
Quarter: 2007Q2

REPORT INFORMATION
  Report Type: 
  Country: None (occurrence: None)
  Receive Date: 20070406
  Receipt Date: 20070322
  Transmission Date: 20071010
  Serious: Yes (Hospitalization)
  Sender: FDA-Public Use
  Company Number: 8022955

PATIENT
  Age: 39 Year
  Sex: Male

DRUGS (3)
  1. KEPPRA [Suspect]
     Dosage: PO
     Route: 048
  2. KEPPRA [Suspect]
     Dosage: 750 MG/D PO
     Route: 048
     Dates: start: 20060101
  3. RISPERDAL [Concomitant]

REACTIONS (6)
  - ABDOMINAL PAIN UPPER [None]
  - DEPRESSION [None]
  - ILEUS [None]
  - INTESTINAL OBSTRUCTION [None]
  - NAUSEA [None]
  - SUICIDAL IDEATION [None]
